FAERS Safety Report 4296441-6 (Version None)
Quarter: 2004Q1

REPORT INFORMATION
  Report Type: 
  Country: None (occurrence: None)
  Receive Date: 20040212
  Receipt Date: 20040205
  Transmission Date: 20041129
  Serious: Yes (Other)
  Sender: FDA-Public Use
  Company Number: 2004198168GB

PATIENT
  Sex: 0

DRUGS (1)
  1. ZYVOX [Suspect]

REACTIONS (1)
  - HYPERKALAEMIA [None]
